FAERS Safety Report 8084537-2 (Version None)
Quarter: 2012Q1

REPORT INFORMATION
  Report Type: 
  Country: None (occurrence: None)
  Receive Date: 20120128
  Receipt Date: 20110330
  Transmission Date: 20120608
  Serious: No
  Sender: FDA-Public Use
  Company Number: US-ABBOTT-11P-163-0716477-00

PATIENT
  Age: 47 Year
  Sex: Female

DRUGS (6)
  1. MULTI-VITAMIN [Concomitant]
     Indication: VITAMIN SUPPLEMENTATION
  2. METFFORMIN HYDROCHLORIDE [Concomitant]
     Indication: DIABETES MELLITUS
     Dates: start: 20090101
  3. HYDROCHLOROTHIAZIDE [Concomitant]
     Indication: HYPERTENSION
  4. ATENOLOL [Concomitant]
     Indication: HYPERTENSION
  5. GLYBURIDE [Concomitant]
     Indication: DIABETES MELLITUS
     Dates: start: 20090101
  6. HUMIRA [Suspect]
     Indication: CROHN'S DISEASE
     Dates: start: 20060101

REACTIONS (7)
  - INJECTION SITE ERYTHEMA [None]
  - PRURITUS [None]
  - ILL-DEFINED DISORDER [None]
  - DEVICE MALFUNCTION [None]
  - INJECTION SITE PAIN [None]
  - DIABETES MELLITUS [None]
  - HEPATIC ENZYME INCREASED [None]
